FAERS Safety Report 14639259 (Version 2)
Quarter: 2018Q2

REPORT INFORMATION
  Report Type: Spontaneous
  Country: US (occurrence: US)
  Receive Date: 20180315
  Receipt Date: 20180428
  Transmission Date: 20180711
  Serious: No
  Sender: FDA-Public Use
  Company Number: US-TEVA-2018-US-869089

PATIENT

DRUGS (4)
  1. VENLAFAXINE [Suspect]
     Active Substance: VENLAFAXINE HYDROCHLORIDE
     Indication: AFFECTIVE DISORDER
  2. CLONAZEPAM. [Suspect]
     Active Substance: CLONAZEPAM
     Indication: SLEEP DISORDER
  3. CLONAZEPAM. [Suspect]
     Active Substance: CLONAZEPAM
     Indication: ANXIETY
  4. CLONAZEPAM. [Suspect]
     Active Substance: CLONAZEPAM
     Indication: AFFECTIVE DISORDER
     Route: 065

REACTIONS (6)
  - Anxiety [Unknown]
  - Drug ineffective [Unknown]
  - Abnormal behaviour [Unknown]
  - Depressed mood [Unknown]
  - Dissociation [Unknown]
  - Depression [Unknown]
